FAERS Safety Report 5076798-9 (Version None)
Quarter: 2006Q3

REPORT INFORMATION
  Report Type: 
  Country: None (occurrence: None)
  Receive Date: 20060725
  Receipt Date: 20060508
  Transmission Date: 20061208
  Serious: No
  Sender: FDA-Public Use
  Company Number: 200613262BWH

PATIENT
  Age: 73 Year
  Sex: Male

DRUGS (10)
  1. NEXAVAR [Suspect]
     Indication: RENAL CELL CARCINOMA STAGE UNSPECIFIED
     Dosage: SEE IMAGE
     Route: 048
     Dates: start: 20060301
  2. TOPROL-XL [Concomitant]
  3. HYZAAR [Concomitant]
  4. LOTREL [Concomitant]
  5. OXYCONTIN [Concomitant]
  6. ASPIRIN [Concomitant]
  7. MULTI-VITAMIN [Concomitant]
  8. MAGNESIUM OXIDE [Concomitant]
  9. FISH OIL [Concomitant]
  10. NPH INSULIN [Concomitant]

REACTIONS (7)
  - ALOPECIA [None]
  - BLISTER [None]
  - FLATULENCE [None]
  - FREQUENT BOWEL MOVEMENTS [None]
  - GENERALISED ERYTHEMA [None]
  - GINGIVAL BLEEDING [None]
  - RASH MACULAR [None]
